FAERS Safety Report 8600330 (Version 2)
Quarter: 2013Q3

REPORT INFORMATION
  Report Type: Spontaneous
  Country: US (occurrence: US)
  Receive Date: 20120606
  Receipt Date: 20130808
  Transmission Date: 20140515
  Serious: Yes (Hospitalization, Other)
  Sender: FDA-Public Use
  Company Number: US-ASTRAZENECA-2012SE35407

PATIENT
  Age: 56 Year
  Sex: Female
  Weight: 90.7 kg

DRUGS (14)
  1. NEXIUM [Suspect]
     Indication: GASTROOESOPHAGEAL REFLUX DISEASE
     Route: 048
     Dates: start: 20060525
  2. NEXIUM [Suspect]
     Indication: GASTROOESOPHAGEAL REFLUX DISEASE
     Route: 048
     Dates: start: 20070310
  3. BACLOFEN [Concomitant]
     Indication: MUSCLE RELAXANT THERAPY
  4. DIOVAN [Concomitant]
     Indication: BLOOD PRESSURE
  5. OXYBUTYNIN [Concomitant]
     Indication: HYPERTONIC BLADDER
  6. ATORVASTATIN [Concomitant]
     Indication: BLOOD CHOLESTEROL INCREASED
  7. HYDROCODONE [Concomitant]
     Indication: ARTHRALGIA
  8. HYDROCODONE [Concomitant]
     Indication: BONE PAIN
  9. MELOXICAM [Concomitant]
     Indication: OSTEOARTHRITIS
  10. LANTUS [Concomitant]
     Indication: BLOOD GLUCOSE INCREASED
  11. CELEBREX [Concomitant]
     Indication: GAIT DISTURBANCE
  12. LYRICA [Concomitant]
     Indication: GAIT DISTURBANCE
  13. ZOCOR [Concomitant]
     Dates: start: 20061003
  14. LISINOPRIL [Concomitant]
     Dates: start: 20061003

REACTIONS (10)
  - Chest pain [Unknown]
  - Tendonitis [Unknown]
  - Skin cancer [Unknown]
  - Osteoporosis [Unknown]
  - Multiple fractures [Unknown]
  - Meniscus injury [Unknown]
  - Osteoarthritis [Unknown]
  - Arthritis [Unknown]
  - Diarrhoea [Unknown]
  - Headache [Unknown]
